FAERS Safety Report 4318724-3 (Version None)
Quarter: 2004Q1

REPORT INFORMATION
  Report Type: 
  Country: None (occurrence: None)
  Receive Date: 20040317
  Receipt Date: 20040317
  Transmission Date: 20041129
  Serious: Yes (Hospitalization, Other)
  Sender: FDA-Public Use
  Company Number: None

PATIENT
  Sex: Female
  Weight: 63.5036 kg

DRUGS (3)
  1. AFEDITAB CR 30 MG WATSON [Suspect]
     Indication: HYPERTENSION
     Dosage: 30 MG BID ORALLY
     Route: 048
     Dates: start: 20040113
  2. LISINOPRIL [Concomitant]
  3. EPOGEN [Concomitant]

REACTIONS (2)
  - HYPOTENSION [None]
  - PHARMACEUTICAL PRODUCT COMPLAINT [None]
